FAERS Safety Report 8799316 (Version 2)
Quarter: 2012Q4

REPORT INFORMATION
  Report Type: Report from Study
  Country: BR (occurrence: BR)
  Receive Date: 20120920
  Receipt Date: 20120925
  Transmission Date: 20130627
  Serious: Yes (Hospitalization)
  Sender: FDA-Public Use
  Company Number: BR-GILEAD-2012-0061252

PATIENT
  Age: 40 Year
  Sex: Female

DRUGS (3)
  1. TENOFOVIR DISOPROXIL FUMARATE [Suspect]
     Indication: HIV INFECTION
     Dosage: UNK
     Dates: start: 20110211
  2. LAMIVUDINE [Suspect]
     Indication: HIV INFECTION
     Dosage: UNK
     Dates: start: 20110211
  3. RALTEGRAVIR [Suspect]
     Indication: HIV INFECTION
     Dosage: UNK
     Dates: start: 20110211

REACTIONS (1)
  - B-cell lymphoma [Unknown]
